FAERS Safety Report 10193316 (Version 1)
Quarter: 2014Q2

REPORT INFORMATION
  Report Type: Spontaneous
  Country: US (occurrence: US)
  Receive Date: 20140524
  Receipt Date: 20140524
  Transmission Date: 20141212
  Serious: No
  Sender: FDA-Public Use
  Company Number: US-SA-2013SA117411

PATIENT
  Age: 74 Year
  Sex: Male
  Weight: 104 kg

DRUGS (18)
  1. LANTUS SOLOSTAR [Suspect]
     Indication: TYPE 2 DIABETES MELLITUS
     Dosage: DOSE:30 UNIT(S)
     Route: 065
     Dates: start: 20130701, end: 20131113
  2. LANTUS SOLOSTAR [Suspect]
     Indication: TYPE 2 DIABETES MELLITUS
     Dosage: DOSE:30 UNIT(S)
     Route: 051
     Dates: start: 20131114
  3. SOLOSTAR [Concomitant]
     Indication: TYPE 2 DIABETES MELLITUS
     Dates: start: 201305
  4. JANUVIA [Concomitant]
  5. ACTOS [Concomitant]
  6. AVODART [Concomitant]
  7. HYDROCHLOROTHIAZIDE [Concomitant]
  8. LISINOPRIL [Concomitant]
  9. PROTONIX [Concomitant]
  10. VITAMIN D3 [Concomitant]
  11. GLUCOSAMINE [Concomitant]
  12. CHONDROITIN SULFATE [Concomitant]
  13. B COMPLEX [Concomitant]
     Dosage: 1X
  14. CENTRUM SILVER [Concomitant]
  15. CALCIUM [Concomitant]
  16. VITAMIN C [Concomitant]
  17. ZINC [Concomitant]
  18. MAG-OX [Concomitant]

REACTIONS (4)
  - Visual impairment [Not Recovered/Not Resolved]
  - Tremor [Not Recovered/Not Resolved]
  - Blood glucose decreased [Not Recovered/Not Resolved]
  - Blood glucose increased [Recovered/Resolved]
